FAERS Safety Report 6593428-5 (Version None)
Quarter: 2010Q1

REPORT INFORMATION
  Report Type: 
  Country: None (occurrence: None)
  Receive Date: 20100222
  Receipt Date: 20090420
  Transmission Date: 20100710
  Serious: No
  Sender: FDA-Public Use
  Company Number: US-BRISTOL-MYERS SQUIBB COMPANY-14594337

PATIENT
  Age: 50 Year
  Sex: Female
  Weight: 49 kg

DRUGS (7)
  1. ORENCIA [Suspect]
     Dosage: 4TH INFUSION ON 30MAR09, 500MG
     Dates: start: 20090203
  2. PREDNISONE [Concomitant]
  3. FORTEO [Concomitant]
     Dates: start: 20090328
  4. PREVACID [Concomitant]
  5. TRAMADOL [Concomitant]
  6. XANAX [Concomitant]
  7. VITAMIN D [Concomitant]

REACTIONS (1)
  - DRUG INEFFECTIVE [None]
